FAERS Safety Report 11279690 (Version 1)
Quarter: 2015Q3

REPORT INFORMATION
  Report Type: Spontaneous
  Country: US (occurrence: None)
  Receive Date: 20150715
  Receipt Date: 20150715
  Transmission Date: 20151125
  Serious: No
  Sender: FDA-Public Use
  Company Number: None

PATIENT
  Age: 59 Year
  Sex: Female
  Weight: 90.72 kg

DRUGS (6)
  1. SSD [Suspect]
     Active Substance: SILVER SULFADIAZINE
     Indication: BURNS SECOND DEGREE
     Dosage: COVER ENTIRE BURN AREA; APPLIED TO A SURFACE USUALLY THE SKIN.
     Dates: start: 20150515, end: 20150713
  2. VITAMIN C [Concomitant]
     Active Substance: ASCORBIC ACID
  3. MULTI-VITAMIN [Concomitant]
     Active Substance: .ALPHA.-TOCOPHEROL ACETATE, DL-\ASCORBIC ACID\CYANOCOBALAMIN\FLUORIDE ION\FOLIC ACID\NIACIN\PYRIDOXINE\RIBOFLAVIN\THIAMINE\VITAMIN A\VITAMIN D
  4. VITAMIN E [Concomitant]
     Active Substance: .ALPHA.-TOCOPHEROL
  5. NYSTATIN. [Concomitant]
     Active Substance: NYSTATIN
  6. PAXIL [Concomitant]
     Active Substance: PAROXETINE HYDROCHLORIDE

REACTIONS (1)
  - Application site hypersensitivity [None]

NARRATIVE: CASE EVENT DATE: 20150713
